FAERS Safety Report 17361419 (Version 3)
Quarter: 2020Q2

REPORT INFORMATION
  Report Type: Spontaneous
  Country: US (occurrence: US)
  Receive Date: 20200203
  Receipt Date: 20200403
  Transmission Date: 20200713
  Serious: No
  Sender: FDA-Public Use
  Company Number: US-PFIZER INC-2019523938

PATIENT
  Age: 16 Month
  Sex: Female
  Weight: 7.26 kg

DRUGS (5)
  1. DIURIL [CHLOROTHIAZIDE] [Concomitant]
     Indication: DIABETES INSIPIDUS
     Dosage: 0.84 ML, 2X/DAY
     Route: 048
  2. DIURIL [CHLOROTHIAZIDE] [Concomitant]
     Indication: DIABETES MELLITUS
  3. FAMOTIDINE. [Concomitant]
     Active Substance: FAMOTIDINE
     Indication: GASTROOESOPHAGEAL REFLUX DISEASE
     Dosage: 0.5 ML, 2X/DAY
     Route: 048
     Dates: start: 201912
  4. GENOTROPIN [Suspect]
     Active Substance: SOMATROPIN
     Indication: FAILURE TO THRIVE
     Dosage: 0.2 MG, 1X/DAY (EVERY NIGHT)
     Route: 058
     Dates: start: 20191001
  5. DIURIL [CHLOROTHIAZIDE] [Concomitant]
     Indication: CARDIOVASCULAR DISORDER

REACTIONS (4)
  - Product use in unapproved indication [Unknown]
  - Device issue [Unknown]
  - Off label use [Unknown]
  - Drug dose omission by device [Unknown]

NARRATIVE: CASE EVENT DATE: 20191001
